FAERS Safety Report 13289540 (Version 2)
Quarter: 2017Q2

REPORT INFORMATION
  Report Type: Spontaneous
  Country: US (occurrence: US)
  Receive Date: 20170302
  Receipt Date: 20170412
  Transmission Date: 20170830
  Serious: No
  Sender: FDA-Public Use
  Company Number: US-JNJFOC-20161205254

PATIENT
  Sex: Female

DRUGS (1)
  1. OXYBUTYNIN [Suspect]
     Active Substance: OXYBUTYNIN
     Indication: PRODUCT USED FOR UNKNOWN INDICATION
     Route: 065

REACTIONS (2)
  - Inappropriate schedule of drug administration [Unknown]
  - Drug ineffective [Unknown]
